FAERS Safety Report 4883993-8 (Version None)
Quarter: 2006Q1

REPORT INFORMATION
  Report Type: 
  Country: None (occurrence: None)
  Receive Date: 20060117
  Receipt Date: 20060103
  Transmission Date: 20060701
  Serious: Yes (Hospitalization, Other)
  Sender: FDA-Public Use
  Company Number: HQWYE400909JUN04

PATIENT
  Age: 38 Year
  Sex: Female
  Weight: 68.1 kg

DRUGS (2)
  1. PREMARIN [Suspect]
     Indication: OESTROGEN REPLACEMENT THERAPY
     Dosage: 0.625 MG DAILY, ORAL
     Route: 048
     Dates: start: 20020726, end: 20030727
  2. CALCIUM (CALCIUM) [Concomitant]

REACTIONS (15)
  - ASTHENIA [None]
  - CHEST PAIN [None]
  - DYSPNOEA [None]
  - EXOPHTHALMOS [None]
  - FAECAL INCONTINENCE [None]
  - FLUID RETENTION [None]
  - MAMMOGRAM ABNORMAL [None]
  - OEDEMA [None]
  - PAIN IN EXTREMITY [None]
  - PARAESTHESIA [None]
  - PULMONARY EMBOLISM [None]
  - SINUS ARRHYTHMIA [None]
  - THROMBOSIS [None]
  - URINARY INCONTINENCE [None]
  - VASODILATATION [None]
